FAERS Safety Report 12348428 (Version 1)
Quarter: 2016Q2

REPORT INFORMATION
  Report Type: Spontaneous
  Country: US (occurrence: US)
  Receive Date: 20160509
  Receipt Date: 20160509
  Transmission Date: 20160815
  Serious: Yes (Death, Other)
  Sender: FDA-Public Use
  Company Number: US-PURDUE-USA-2016-0130742

PATIENT
  Sex: Male

DRUGS (1)
  1. OXYCONTIN [Suspect]
     Active Substance: OXYCODONE HYDROCHLORIDE
     Indication: BACK INJURY
     Dosage: UNK
     Route: 048
     Dates: start: 2012

REACTIONS (7)
  - Gait disturbance [Unknown]
  - Somnolence [Unknown]
  - Road traffic accident [Unknown]
  - Confusional state [Unknown]
  - Neglect of personal appearance [Unknown]
  - Hypersomnia [Unknown]
  - Overdose [Fatal]

NARRATIVE: CASE EVENT DATE: 2012
